FAERS Safety Report 14468016 (Version 4)
Quarter: 2018Q3

REPORT INFORMATION
  Report Type: Spontaneous
  Country: US (occurrence: US)
  Receive Date: 20180131
  Receipt Date: 20180926
  Transmission Date: 20181010
  Serious: No
  Sender: FDA-Public Use
  Company Number: US-PFIZER INC-2018041097

PATIENT
  Age: 10 Year
  Sex: Male
  Weight: 22.68 kg

DRUGS (1)
  1. GENOTROPIN [Suspect]
     Active Substance: SOMATROPIN
     Indication: BODY HEIGHT BELOW NORMAL
     Dosage: 1 MG, 1X/DAY (NIGHTLY)
     Dates: start: 20180221

REACTIONS (3)
  - Wrong technique in device usage process [Unknown]
  - Drug dose omission [Unknown]
  - Arthralgia [Unknown]
